FAERS Safety Report 9269651 (Version 2)
Quarter: 2013Q2

REPORT INFORMATION
  Report Type: Spontaneous
  Country: JP (occurrence: JP)
  Receive Date: 20130503
  Receipt Date: 20130521
  Transmission Date: 20140414
  Serious: Yes (Other)
  Sender: FDA-Public Use
  Company Number: JP-PFIZER INC-2013131364

PATIENT
  Age: 56 Year
  Sex: Female

DRUGS (4)
  1. CELECOX [Suspect]
     Indication: BACK PAIN
     Dosage: 100 MG, 2X/DAY
     Route: 048
     Dates: start: 20130408, end: 20130409
  2. MYORELARK [Concomitant]
     Indication: BACK PAIN
     Dosage: 150 MG, DAILY
     Dates: start: 20130408, end: 20130409
  3. MUCOSTA [Concomitant]
     Indication: BACK PAIN
     Dosage: 200 MG, DAILY
     Route: 048
     Dates: start: 20130408, end: 20130409
  4. ADOFEED [Concomitant]
     Indication: BACK PAIN
     Dosage: 1 TO 2 SHEETS, DAILY
     Dates: start: 20130408, end: 20130409

REACTIONS (3)
  - Feeling abnormal [Recovered/Resolved]
  - Oedema [Recovered/Resolved]
  - Pruritus generalised [Recovered/Resolved]
